FAERS Safety Report 8152406-5 (Version None)
Quarter: 2012Q1

REPORT INFORMATION
  Report Type: 
  Country: None (occurrence: None)
  Receive Date: 20120215
  Receipt Date: 20120215
  Transmission Date: 20120608
  Serious: Yes (Hospitalization)
  Sender: FDA-Public Use
  Company Number: None

PATIENT
  Age: 50 Year
  Sex: Female
  Weight: 78 kg

DRUGS (2)
  1. TEMOZOLOMIDE [Suspect]
     Indication: OVARIAN CANCER
     Dosage: 280 MG PO DAYS 1-5
     Route: 048
     Dates: start: 20120112, end: 20120116
  2. METHOXYAMINE [Suspect]
     Indication: OVARIAN CANCER
     Dosage: 27.3 MG IV DAY 1
     Dates: start: 20120112

REACTIONS (2)
  - SMALL INTESTINAL OBSTRUCTION [None]
  - DIARRHOEA [None]
